FAERS Safety Report 9840059 (Version 1)
Quarter: 2013Q4

REPORT INFORMATION
  Report Type: Spontaneous
  Country: US (occurrence: None)
  Receive Date: 20131211
  Receipt Date: 20131211
  Transmission Date: 20140711
  Serious: No
  Sender: FDA-Public Use
  Company Number: ALL1-2012-00572

PATIENT
  Age: 39 Year
  Sex: Male

DRUGS (1)
  1. FIRAZYR (ICATIBANT) SOLUTION FOR INJECTION IN PRE FILLED SYRINGE [Suspect]
     Indication: HEREDITARY ANGIOEDEMA
     Route: 058

REACTIONS (1)
  - Injection site erythema [None]
